FAERS Safety Report 7714059-7 (Version None)
Quarter: 2011Q3

REPORT INFORMATION
  Report Type: 
  Country: None (occurrence: None)
  Receive Date: 20110826
  Receipt Date: 20110822
  Transmission Date: 20111222
  Serious: Yes (Life-Threatening, Other)
  Sender: FDA-Public Use
  Company Number: US-ASTRAZENECA-2011SE50420

PATIENT
  Age: 48 Year
  Sex: Female

DRUGS (5)
  1. SEROQUEL XR [Suspect]
     Indication: BIPOLAR DISORDER
     Route: 048
  2. SEROQUEL XR [Suspect]
     Indication: PSYCHOTIC DISORDER
     Route: 048
  3. SEROQUEL XR [Suspect]
     Indication: INSOMNIA
     Route: 048
  4. SEROQUEL XR [Suspect]
     Indication: POST-TRAUMATIC STRESS DISORDER
     Route: 048
  5. SEROQUEL XR [Suspect]
     Indication: ANXIETY
     Route: 048

REACTIONS (12)
  - RESUSCITATION [None]
  - ACTIVITIES OF DAILY LIVING IMPAIRED [None]
  - SPEECH DISORDER [None]
  - APPARENT DEATH [None]
  - SOMNOLENCE [None]
  - THIRST [None]
  - PANIC ATTACK [None]
  - TREMOR [None]
  - MENTAL IMPAIRMENT [None]
  - NERVOUSNESS [None]
  - HYPOKINESIA [None]
  - OFF LABEL USE [None]
